FAERS Safety Report 9995679 (Version 2)
Quarter: 2014Q1

REPORT INFORMATION
  Report Type: Spontaneous
  Country: US (occurrence: US)
  Receive Date: 20140311
  Receipt Date: 20140311
  Transmission Date: 20141002
  Serious: Yes (Other)
  Sender: FDA-Public Use
  Company Number: US-ASTRAZENECA-2010SE36654

PATIENT
  Age: 56 Year
  Sex: Male
  Weight: 142 kg

DRUGS (20)
  1. NEXIUM [Suspect]
     Indication: DYSPEPSIA
     Route: 048
     Dates: start: 2008
  2. NEXIUM [Suspect]
     Indication: GASTROOESOPHAGEAL REFLUX DISEASE
     Route: 048
     Dates: start: 2008
  3. NEXIUM [Suspect]
     Indication: DYSPEPSIA
     Route: 048
     Dates: start: 2012, end: 20140210
  4. NEXIUM [Suspect]
     Indication: GASTROOESOPHAGEAL REFLUX DISEASE
     Route: 048
     Dates: start: 2012, end: 20140210
  5. LISINOPRIL [Suspect]
     Indication: HYPERTENSION
     Route: 048
     Dates: start: 2006
  6. XANAX [Concomitant]
     Indication: NERVOUS SYSTEM DISORDER
     Route: 048
     Dates: start: 2012
  7. SIMVASTATIN [Concomitant]
     Indication: BLOOD CHOLESTEROL ABNORMAL
     Route: 048
     Dates: start: 2005
  8. COREG [Concomitant]
     Indication: BLOOD PRESSURE ABNORMAL
     Route: 048
     Dates: start: 2006
  9. VITAMIN D [Concomitant]
     Route: 048
     Dates: start: 201307
  10. CITALOPRAM [Concomitant]
     Indication: ANXIOLYTIC THERAPY
     Route: 048
  11. UNKNOWN [Concomitant]
     Indication: SINUS DISORDER
     Dosage: DAILY
     Route: 045
     Dates: start: 2007
  12. SPIRIVA [Concomitant]
     Indication: CHRONIC OBSTRUCTIVE PULMONARY DISEASE
     Dosage: DAILY
     Route: 055
     Dates: start: 2006
  13. ALBUTEROL [Concomitant]
     Indication: CHRONIC OBSTRUCTIVE PULMONARY DISEASE
     Dosage: 25MG/3ML, QID
     Route: 055
     Dates: start: 2008
  14. MYRBETRIQ [Concomitant]
     Indication: HYPERTONIC BLADDER
     Route: 048
     Dates: start: 20140224
  15. POTASSIUM [Concomitant]
     Indication: ELECTROLYTE SUBSTITUTION THERAPY
     Route: 048
     Dates: start: 2005
  16. FUROSEMIDE [Concomitant]
     Indication: DIURETIC THERAPY
     Route: 048
     Dates: start: 2005
  17. MONTELUKAST SODIUM [Concomitant]
     Indication: MULTIPLE ALLERGIES
     Route: 048
     Dates: start: 201309
  18. PERCOCET [Concomitant]
     Indication: PAIN
     Dosage: 10-32 MG , QID
     Route: 048
     Dates: start: 201309
  19. TAMSULOSIN [Concomitant]
     Indication: PROSTATIC DISORDER
     Route: 048
     Dates: start: 2011
  20. LORTAB [Concomitant]
     Indication: PAIN
     Route: 048
     Dates: start: 2008, end: 201309

REACTIONS (13)
  - Visual impairment [Recovered/Resolved]
  - Dyspepsia [Not Recovered/Not Resolved]
  - Diabetes mellitus [Unknown]
  - Cardiac disorder [Not Recovered/Not Resolved]
  - Dysuria [Recovered/Resolved]
  - Cardiac failure congestive [Unknown]
  - Gait disturbance [Not Recovered/Not Resolved]
  - Pollakiuria [Recovered/Resolved]
  - Dysphagia [Unknown]
  - Vomiting [Not Recovered/Not Resolved]
  - Malaise [Not Recovered/Not Resolved]
  - Drug dose omission [Not Recovered/Not Resolved]
  - Drug ineffective [Not Recovered/Not Resolved]
